FAERS Safety Report 8007154-9 (Version None)
Quarter: 2011Q4

REPORT INFORMATION
  Report Type: 
  Country: None (occurrence: None)
  Receive Date: 20111205
  Receipt Date: 20111128
  Transmission Date: 20120403
  Serious: Yes (Life-Threatening, Hospitalization)
  Sender: FDA-Public Use
  Company Number: 2011030436

PATIENT
  Age: 75 Year
  Sex: Male

DRUGS (13)
  1. PRIVIGEN [Suspect]
     Indication: HUMORAL IMMUNE DEFECT
     Dosage: 5 G QD, 20 G QD, 25 G 1X/MONTH
     Route: 042
     Dates: start: 20101103, end: 20111103
  2. PRIVIGEN [Suspect]
     Indication: HUMORAL IMMUNE DEFECT
     Dosage: 5 G QD, 20 G QD, 25 G 1X/MONTH
     Route: 042
     Dates: start: 20111103, end: 20111103
  3. PRIVIGEN [Suspect]
     Indication: HUMORAL IMMUNE DEFECT
     Dosage: 5 G QD, 20 G QD, 25 G 1X/MONTH
     Route: 042
     Dates: start: 20110901
  4. SINTROM [Concomitant]
  5. COLCHIMAX /01722001/ (COLCHIMAX /01722001/) [Concomitant]
  6. FUROSEMIDE [Concomitant]
  7. ALLOPURINOL [Concomitant]
  8. ACARBOSE [Concomitant]
  9. FERROUS FUMARATE [Concomitant]
  10. ATACAND [Concomitant]
  11. ISOPTIN [Concomitant]
  12. CORDARONE /00133101/ (AMIODARONE) [Concomitant]
  13. SYMBICORT [Concomitant]

REACTIONS (8)
  - CYANOSIS [None]
  - CARDIO-RESPIRATORY ARREST [None]
  - RASH MACULAR [None]
  - AORTIC BRUIT [None]
  - HEART SOUNDS ABNORMAL [None]
  - EXTENSOR PLANTAR RESPONSE [None]
  - HYPOKALAEMIA [None]
  - MITRAL VALVE INCOMPETENCE [None]
